FAERS Safety Report 6919402-4 (Version None)
Quarter: 2010Q3

REPORT INFORMATION
  Report Type: 
  Country: None (occurrence: None)
  Receive Date: 20100811
  Receipt Date: 20100803
  Transmission Date: 20110219
  Serious: Yes (Hospitalization)
  Sender: FDA-Public Use
  Company Number: A0874958A

PATIENT
  Age: 61 Year
  Sex: Male

DRUGS (2)
  1. AVANDIA [Suspect]
     Route: 048
     Dates: start: 20031201, end: 20070801
  2. AVANDAMET [Suspect]
     Route: 048
     Dates: start: 20070801, end: 20091022

REACTIONS (3)
  - GENERAL PHYSICAL HEALTH DETERIORATION [None]
  - MYOCARDIAL INFARCTION [None]
  - RENAL FAILURE ACUTE [None]
